FAERS Safety Report 10953989 (Version 1)
Quarter: 2015Q1

REPORT INFORMATION
  Report Type: Spontaneous
  Country: US (occurrence: None)
  Receive Date: 20150226
  Receipt Date: 20150226
  Transmission Date: 20150721
  Serious: No
  Sender: FDA-Public Use
  Company Number: TAP2005Q00104

PATIENT
  Age: 65 Year
  Sex: Female
  Weight: 90.72 kg

DRUGS (3)
  1. PREVPAC [Suspect]
     Active Substance: AMOXICILLIN\CLARITHROMYCIN\LANSOPRAZOLE
     Indication: HELICOBACTER INFECTION
     Dosage: 0.5 CARD, ONCE
     Route: 048
     Dates: start: 20050120, end: 20050120
  2. COREG [Concomitant]
     Active Substance: CARVEDILOL
  3. SYNTHROID [Concomitant]
     Active Substance: LEVOTHYROXINE SODIUM

REACTIONS (5)
  - Asthenia [None]
  - Syncope [None]
  - Pruritus [None]
  - Hypersensitivity [None]
  - Burning sensation [None]

NARRATIVE: CASE EVENT DATE: 20050120
